FAERS Safety Report 24638818 (Version 1)
Quarter: 2024Q4

REPORT INFORMATION
  Report Type: Other
  Country: JP (occurrence: JP)
  Receive Date: 20241119
  Receipt Date: 20241119
  Transmission Date: 20250115
  Serious: Yes (Hospitalization)
  Sender: B BRAUN
  Company Number: JP-B.Braun Medical Inc.-2165382

PATIENT
  Age: 79 Year
  Sex: Male

DRUGS (10)
  1. ACETAMINOPHEN [Suspect]
     Active Substance: ACETAMINOPHEN
     Indication: Fatigue
  2. MIGLITOL [Suspect]
     Active Substance: MIGLITOL
  3. HYDROCHLOROTHIAZIDE [Concomitant]
     Active Substance: HYDROCHLOROTHIAZIDE
  4. TELMISARTAN [Concomitant]
     Active Substance: TELMISARTAN
  5. Mesylate [Concomitant]
  6. DOXAZOSIN [Concomitant]
     Active Substance: DOXAZOSIN\DOXAZOSIN MESYLATE
  7. NIFEDIPINE [Concomitant]
     Active Substance: NIFEDIPINE
  8. DULAGLUTIDE [Concomitant]
     Active Substance: DULAGLUTIDE
  9. GLIMEPIRIDE [Concomitant]
     Active Substance: GLIMEPIRIDE
  10. METFORMIN HYDROCHLORIDE [Suspect]
     Active Substance: METFORMIN HYDROCHLORIDE

REACTIONS (2)
  - Tubulointerstitial nephritis [Recovering/Resolving]
  - Off label use [Recovering/Resolving]
